FAERS Safety Report 4802333-3 (Version None)
Quarter: 2005Q4

REPORT INFORMATION
  Report Type: 
  Country: None (occurrence: None)
  Receive Date: 20051014
  Receipt Date: 20050106
  Transmission Date: 20060501
  Serious: Yes (Other)
  Sender: FDA-Public Use
  Company Number: 2004109175

PATIENT
  Age: 44 Year
  Sex: Female
  Weight: 72.5755 kg

DRUGS (5)
  1. NEURONTIN [Suspect]
     Indication: BACK PAIN
     Dosage: 3600 MG (1200 M, 3 IN 1 D), ORAL
     Route: 048
     Dates: start: 20020101
  2. LAMIVUDINE AND ZIDOVUDINE [Concomitant]
  3. EFAVIRENZ (EFAVIRENZ) [Concomitant]
  4. PAROXETINE HCL [Concomitant]
  5. OXYCODONE HCL [Concomitant]

REACTIONS (3)
  - DRUG INEFFECTIVE [None]
  - SUICIDAL IDEATION [None]
  - SUICIDE ATTEMPT [None]
